FAERS Safety Report 7017015-X (Version None)
Quarter: 2010Q3

REPORT INFORMATION
  Report Type: 
  Country: None (occurrence: None)
  Receive Date: 20100927
  Receipt Date: 20100922
  Transmission Date: 20110219
  Serious: No
  Sender: FDA-Public Use
  Company Number: US-PFIZER INC-2010121165

PATIENT
  Sex: Male

DRUGS (1)
  1. CLEOCIN [Suspect]
     Dosage: UNK

REACTIONS (1)
  - ABDOMINAL PAIN UPPER [None]
